FAERS Safety Report 7062319-8 (Version None)
Quarter: 2010Q4

REPORT INFORMATION
  Report Type: 
  Country: None (occurrence: None)
  Receive Date: 20101026
  Receipt Date: 20101020
  Transmission Date: 20110411
  Serious: Yes (Hospitalization)
  Sender: FDA-Public Use
  Company Number: US-GILEAD-2010-0032211

PATIENT
  Sex: Male

DRUGS (19)
  1. LETAIRIS [Suspect]
     Indication: PULMONARY ARTERIAL HYPERTENSION
     Route: 048
     Dates: start: 20090922
  2. REVATIO [Concomitant]
  3. OXYGEN [Concomitant]
  4. FUROSEMIDE [Concomitant]
  5. DIGITEK [Concomitant]
  6. NADOLOL [Concomitant]
  7. CORTEF [Concomitant]
  8. CELL CEPT [Concomitant]
  9. PREDNISONE [Concomitant]
  10. NEORAL [Concomitant]
  11. KEPPRA [Concomitant]
  12. SULFAMETHOXAZOLE TMP SS [Concomitant]
  13. CETRIZINE [Concomitant]
  14. LACTULOSE [Concomitant]
  15. LORAZEPAM [Concomitant]
  16. LOMOTIL [Concomitant]
  17. SYNTHROID [Concomitant]
  18. SEREVENT [Concomitant]
  19. PROAIR HFA [Concomitant]

REACTIONS (3)
  - ABDOMINAL DISTENSION [None]
  - ADRENAL DISORDER [None]
  - PALPITATIONS [None]
